FAERS Safety Report 6568260-9 (Version None)
Quarter: 2010Q1

REPORT INFORMATION
  Report Type: 
  Country: None (occurrence: None)
  Receive Date: 20100128
  Receipt Date: 20090127
  Transmission Date: 20100710
  Serious: Yes (Other)
  Sender: FDA-Public Use
  Company Number: 010468815A

PATIENT
  Sex: Male

DRUGS (1)
  1. PERIOGARD [Suspect]
     Indication: GINGIVITIS
     Dosage: ORAL
     Route: 048

REACTIONS (1)
  - LIP AND/OR ORAL CAVITY CANCER [None]
